FAERS Safety Report 8207167-8 (Version None)
Quarter: 2012Q1

REPORT INFORMATION
  Report Type: 
  Country: None (occurrence: None)
  Receive Date: 20120312
  Receipt Date: 20120303
  Transmission Date: 20120608
  Serious: Yes (Other)
  Sender: FDA-Public Use
  Company Number: AUR-APL-2011-01307

PATIENT
  Age: 42 Year
  Sex: Female

DRUGS (7)
  1. ATORVASTATIN CALCIUM [Suspect]
     Indication: PRODUCT USED FOR UNKNOWN INDICATION
     Dates: start: 20090101
  2. METFORMIN HCL [Concomitant]
  3. SPIRONOLACTONE [Concomitant]
  4. ASPIRIN [Concomitant]
  5. SIMVASTATIN [Suspect]
     Indication: PRODUCT USED FOR UNKNOWN INDICATION
     Dosage: ORAL
     Route: 048
     Dates: start: 20040101, end: 20090101
  6. RAMIPRIL [Concomitant]
  7. ROSIGLITAZONE MALEATE [Concomitant]

REACTIONS (6)
  - HEPATOTOXICITY [None]
  - GLYCOSYLATED HAEMOGLOBIN INCREASED [None]
  - CHRONIC HEPATITIS [None]
  - SMOOTH MUSCLE ANTIBODY POSITIVE [None]
  - ANTINUCLEAR ANTIBODY POSITIVE [None]
  - AUTOIMMUNE HEPATITIS [None]
